FAERS Safety Report 6377736-9 (Version None)
Quarter: 2009Q3

REPORT INFORMATION
  Report Type: 
  Country: None (occurrence: None)
  Receive Date: 20090921
  Receipt Date: 20090917
  Transmission Date: 20100115
  Serious: Yes (Hospitalization)
  Sender: FDA-Public Use
  Company Number: WWISSUE-347

PATIENT
  Sex: Female

DRUGS (1)
  1. COLCHICINE                         WEST-WARD [Suspect]
     Indication: FAMILIAL MEDITERRANEAN FEVER
     Dates: start: 19970101

REACTIONS (7)
  - BLOOD ELECTROLYTES ABNORMAL [None]
  - BLOOD POTASSIUM DECREASED [None]
  - CONDITION AGGRAVATED [None]
  - DEHYDRATION [None]
  - FAMILIAL MEDITERRANEAN FEVER [None]
  - PANCREATITIS [None]
  - PRODUCT SUBSTITUTION ISSUE [None]
